FAERS Safety Report 6649446-1 (Version None)
Quarter: 2010Q1

REPORT INFORMATION
  Report Type: 
  Country: None (occurrence: None)
  Receive Date: 20100324
  Receipt Date: 20100313
  Transmission Date: 20100710
  Serious: Yes (Hospitalization)
  Sender: FDA-Public Use
  Company Number: US-JNJFOC-20100203149

PATIENT
  Age: 83 Year
  Sex: Male
  Weight: 99.79 kg

DRUGS (11)
  1. EXTRA STRENGTH TYLENOL RAPID RELEASE GELS [Suspect]
     Route: 048
  2. EXTRA STRENGTH TYLENOL RAPID RELEASE GELS [Suspect]
     Indication: ARTHRALGIA
     Dosage: ^1000-2000 MG PER DAY^
     Route: 048
  3. LIPITOR [Concomitant]
  4. ZESTRIL [Concomitant]
  5. AMBIEN [Concomitant]
  6. ASPIRIN [Concomitant]
  7. POTASSIUM [Concomitant]
  8. AMARYL [Concomitant]
  9. LASIX [Concomitant]
  10. ZOLOFT [Concomitant]
  11. PROBIOTIC [Concomitant]

REACTIONS (4)
  - ABDOMINAL PAIN UPPER [None]
  - DIARRHOEA [None]
  - LOSS OF CONSCIOUSNESS [None]
  - PRODUCT QUALITY ISSUE [None]
